FAERS Safety Report 17401068 (Version 1)
Quarter: 2020Q1

REPORT INFORMATION
  Report Type: Spontaneous
  Country: US (occurrence: US)
  Receive Date: 20200126
  Receipt Date: 20200126
  Transmission Date: 20200409
  Serious: Yes (Hospitalization)
  Sender: FDA-Public Use
  Company Number: None

PATIENT
  Age: 56 Year
  Sex: Female

DRUGS (1)
  1. ROSUVASTATIN (ROSUVASTATIN CA 10MG TAB) [Suspect]
     Active Substance: ROSUVASTATIN
     Indication: HYPERLIPIDAEMIA
     Route: 048
     Dates: start: 20180131, end: 20191230

REACTIONS (9)
  - Muscle spasms [None]
  - Paraesthesia [None]
  - Rhabdomyolysis [None]
  - Blood glucose increased [None]
  - Headache [None]
  - Nausea [None]
  - Myalgia [None]
  - Blood pressure increased [None]
  - Abdominal pain [None]

NARRATIVE: CASE EVENT DATE: 20191230
